FAERS Safety Report 4494782-0 (Version None)
Quarter: 2004Q4

REPORT INFORMATION
  Report Type: 
  Country: None (occurrence: None)
  Receive Date: 20041103
  Receipt Date: 20041018
  Transmission Date: 20050328
  Serious: Yes (Death)
  Sender: FDA-Public Use
  Company Number: 2004-DE-05514GD

PATIENT
  Age: 26 Year
  Sex: 0

DRUGS (3)
  1. CLONIDINE [Suspect]
     Dosage: PO
     Route: 048
  2. MIRTAZAPINE [Suspect]
  3. VENLAFAXINE HCL [Suspect]
     Dosage: SEE TEXT

REACTIONS (3)
  - ASPIRATION [None]
  - COMPLETED SUICIDE [None]
  - OVERDOSE [None]
